FAERS Safety Report 11432528 (Version 1)
Quarter: 2015Q3

REPORT INFORMATION
  Report Type: Spontaneous
  Country: FR (occurrence: FR)
  Receive Date: 20150828
  Receipt Date: 20150828
  Transmission Date: 20151125
  Serious: Yes (Hospitalization)
  Sender: FDA-Public Use
  Company Number: FR-BAYER-2015-402457

PATIENT
  Age: 18 Year
  Sex: Male

DRUGS (2)
  1. IZILOX [Suspect]
     Active Substance: MOXIFLOXACIN HYDROCHLORIDE
     Dosage: 400 MG, UNK
     Route: 048
     Dates: start: 20150609, end: 20150625
  2. RIMIFON [Suspect]
     Active Substance: ISONIAZID
     Dosage: UNK
     Dates: start: 20150609, end: 20150625

REACTIONS (6)
  - Dysuria [Recovered/Resolved]
  - Abdominal pain [Recovered/Resolved]
  - Weight decreased [Unknown]
  - Vomiting [Recovered/Resolved]
  - Brief psychotic disorder with marked stressors [Unknown]
  - Headache [Unknown]

NARRATIVE: CASE EVENT DATE: 20150625
